FAERS Safety Report 24462341 (Version 1)
Quarter: 2024Q4

REPORT INFORMATION
  Report Type: Spontaneous
  Country: US (occurrence: US)
  Receive Date: 20241018
  Receipt Date: 20241018
  Transmission Date: 20250115
  Serious: No
  Sender: ROCHE
  Company Number: US-ROCHE-3580009

PATIENT
  Age: 28 Year

DRUGS (1)
  1. RITUXIMAB [Suspect]
     Active Substance: RITUXIMAB
     Indication: Product used for unknown indication
     Route: 065

REACTIONS (6)
  - Pruritus [Unknown]
  - Throat irritation [Unknown]
  - Ear pain [Unknown]
  - Oropharyngeal pain [Unknown]
  - Chest pain [Unknown]
  - Chest discomfort [Unknown]

NARRATIVE: CASE EVENT DATE: 20240521
